FAERS Safety Report 17412931 (Version 1)
Quarter: 2020Q1

REPORT INFORMATION
  Report Type: Spontaneous
  Country: US (occurrence: US)
  Receive Date: 20200212
  Receipt Date: 20200212
  Transmission Date: 20200409
  Serious: Yes (Disabling)
  Sender: FDA-Public Use
  Company Number: None

PATIENT
  Age: 59 Year
  Sex: Female
  Weight: 62 kg

DRUGS (1)
  1. CAPECITABINE. [Suspect]
     Active Substance: CAPECITABINE
     Indication: BREAST CANCER
     Route: 048
     Dates: start: 20191019, end: 20191217

REACTIONS (4)
  - Infarction [None]
  - Bone marrow necrosis [None]
  - Bone marrow disorder [None]
  - Groin pain [None]

NARRATIVE: CASE EVENT DATE: 20191024
